FAERS Safety Report 12583450 (Version 3)
Quarter: 2016Q3

REPORT INFORMATION
  Report Type: Report from Study
  Country: US (occurrence: US)
  Receive Date: 20160722
  Receipt Date: 20160914
  Transmission Date: 20161109
  Serious: Yes (Other)
  Sender: FDA-Public Use
  Company Number: US-SA-2016SA013343

PATIENT
  Age: 34 Year
  Sex: Female

DRUGS (2)
  1. LEMTRADA [Suspect]
     Active Substance: ALEMTUZUMAB
     Indication: MULTIPLE SCLEROSIS
     Route: 041
     Dates: start: 20160104, end: 20160108
  2. ACYCLOVIR. [Concomitant]
     Active Substance: ACYCLOVIR

REACTIONS (26)
  - Pigmentation disorder [Recovered/Resolved]
  - Dyspnoea [Unknown]
  - Dizziness [Unknown]
  - Anxiety [Not Recovered/Not Resolved]
  - Oropharyngeal pain [Not Recovered/Not Resolved]
  - Urinary retention [Not Recovered/Not Resolved]
  - Asthenia [Not Recovered/Not Resolved]
  - White blood cell count decreased [Not Recovered/Not Resolved]
  - Nasopharyngitis [Not Recovered/Not Resolved]
  - Social problem [Recovering/Resolving]
  - Depression [Recovering/Resolving]
  - Memory impairment [Not Recovered/Not Resolved]
  - White blood cell count abnormal [Not Recovered/Not Resolved]
  - Eczema [Unknown]
  - Bacterial test [Not Recovered/Not Resolved]
  - Intentional self-injury [Recovered/Resolved]
  - Hypersensitivity [Unknown]
  - Weight decreased [Recovering/Resolving]
  - Loss of consciousness [Recovered/Resolved]
  - Urinary tract infection [Unknown]
  - White blood cells urine positive [Recovering/Resolving]
  - Dry skin [Unknown]
  - Dyspnoea [Recovered/Resolved]
  - Muscle spasms [Recovering/Resolving]
  - Eating disorder [Recovering/Resolving]
  - Body temperature decreased [Unknown]

NARRATIVE: CASE EVENT DATE: 2016
